FAERS Safety Report 4450840-8 (Version None)
Quarter: 2004Q3

REPORT INFORMATION
  Report Type: 
  Country: None (occurrence: None)
  Receive Date: 20040913
  Receipt Date: 20040726
  Transmission Date: 20050211
  Serious: No
  Sender: FDA-Public Use
  Company Number: 2004-BP-06170BP(0)

PATIENT
  Age: 48 Year
  Sex: Female

DRUGS (9)
  1. SPIRIVA [Suspect]
     Indication: CHRONIC OBSTRUCTIVE AIRWAYS DISEASE
     Dosage: 18 MCG (18 MCG, 1 IN 1 D), IH
     Route: 055
  2. ALBUTEROL [Concomitant]
  3. ADVAIR (SERETIDEMITE) [Concomitant]
  4. PREMARIN [Concomitant]
  5. NEXIUM [Concomitant]
  6. LASIX [Concomitant]
  7. ULTRAM [Concomitant]
  8. DARVOCET [Concomitant]
  9. OXYGEN (OXYGEN) [Concomitant]

REACTIONS (1)
  - MEMORY IMPAIRMENT [None]
